APPROVED DRUG PRODUCT: DYRENIUM
Active Ingredient: TRIAMTERENE
Strength: 100MG
Dosage Form/Route: CAPSULE;ORAL
Application: N013174 | Product #002 | TE Code: AB
Applicant: ADVANZ PHARMA (US) CORP
Approved: Approved Prior to Jan 1, 1982 | RLD: Yes | RS: Yes | Type: RX